FAERS Safety Report 5644445-0 (Version None)
Quarter: 2008Q1

REPORT INFORMATION
  Report Type: 
  Country: None (occurrence: None)
  Receive Date: 20080229
  Receipt Date: 20070102
  Transmission Date: 20080703
  Serious: No
  Sender: FDA-Public Use
  Company Number: A0633224A

PATIENT
  Age: 44 Year
  Sex: Female

DRUGS (2)
  1. VALACYCLOVIR [Suspect]
     Dosage: 500MG PER DAY
     Route: 048
     Dates: start: 20061219, end: 20061230
  2. NO CONCURRENT MEDICATION [Concomitant]

REACTIONS (2)
  - ABDOMINAL PAIN [None]
  - RASH ERYTHEMATOUS [None]
